FAERS Safety Report 10931965 (Version 2)
Quarter: 2015Q2

REPORT INFORMATION
  Report Type: Spontaneous
  Country: US (occurrence: US)
  Receive Date: 20150319
  Receipt Date: 20150421
  Transmission Date: 20150821
  Serious: Yes (Hospitalization, Other)
  Sender: FDA-Public Use
  Company Number: US-009507513-1503USA008300

PATIENT
  Age: 39 Year
  Sex: Female

DRUGS (3)
  1. CARVEDILOL. [Concomitant]
     Active Substance: CARVEDILOL
  2. DECADRON [Suspect]
     Active Substance: DEXAMETHASONE
     Indication: PHARYNGITIS STREPTOCOCCAL
  3. METOPROLOL [Suspect]
     Active Substance: METOPROLOL

REACTIONS (1)
  - Phaeochromocytoma crisis [Recovered/Resolved]
